FAERS Safety Report 5746316-8 (Version None)
Quarter: 2008Q2

REPORT INFORMATION
  Report Type: 
  Country: None (occurrence: None)
  Receive Date: 20080520
  Receipt Date: 20080507
  Transmission Date: 20081010
  Serious: Yes (Other)
  Sender: FDA-Public Use
  Company Number: 2008-01618

PATIENT
  Age: 60 Year
  Sex: Male
  Weight: 106 kg

DRUGS (14)
  1. VELCADE [Suspect]
     Indication: MULTIPLE MYELOMA
     Dosage: 2.3 MG, INTRAVENOUS
     Route: 042
     Dates: start: 20071127, end: 20071130
  2. METHYCOBAL (MECOBALAMIN) [Concomitant]
  3. OPALMON (LIMAPROST) [Concomitant]
  4. FAMOTIDINE [Concomitant]
  5. ALLOPURINOL [Concomitant]
  6. ALENDRONATE SODIUM [Concomitant]
  7. LASIX [Concomitant]
  8. BAKTAR (SULFAMETHOXAZOLE, TRIMETHOPRIM) TABLET [Concomitant]
  9. LOXONIN (LOXOPROFEN SODIUM) [Concomitant]
  10. SELBEX (TEPRENONE) [Concomitant]
  11. TORSEMIDE [Concomitant]
  12. FLUCONAZOLE [Concomitant]
  13. MAG-LAX (MAGNESIUM HYDROXIDE, PARAFFIN, LIQUID) [Concomitant]
  14. PURSENNID (SENNA LEAF) [Concomitant]

REACTIONS (4)
  - PARAPLEGIA [None]
  - PLATELET COUNT DECREASED [None]
  - REFUSAL OF TREATMENT BY PATIENT [None]
  - WHITE BLOOD CELL COUNT DECREASED [None]
